FAERS Safety Report 4930735-3 (Version None)
Quarter: 2006Q1

REPORT INFORMATION
  Report Type: 
  Country: None (occurrence: None)
  Receive Date: 20060227
  Receipt Date: 20060214
  Transmission Date: 20060701
  Serious: Yes (Hospitalization, Other)
  Sender: FDA-Public Use
  Company Number: 2006022110

PATIENT
  Age: 62 Year
  Sex: Female
  Weight: 79.3795 kg

DRUGS (5)
  1. CELEBREX [Suspect]
     Indication: ARTHRALGIA
     Dosage: 200 MG (200 G, 1 IN 1 D), ORAL
     Route: 048
     Dates: end: 20040301
  2. BEXTRA [Suspect]
     Indication: ARTHRALGIA
     Dosage: (1 IN 1 D)
     Dates: start: 20040101, end: 20040101
  3. LIPITOR [Concomitant]
  4. EXTRA STRENGTH TYLENOL [Concomitant]
  5. ALL OTHER THERAPEUTICS PRODUCTS (ALL OTHER THERAPEUTIC PRODUCTS) [Suspect]
     Indication: URINARY TRACT INFECTION

REACTIONS (9)
  - DRUG HYPERSENSITIVITY [None]
  - INADEQUATE ANALGESIA [None]
  - INCORRECT DOSE ADMINISTERED [None]
  - OSTEOPENIA [None]
  - RASH ERYTHEMATOUS [None]
  - RASH GENERALISED [None]
  - THROMBOSIS [None]
  - URINARY TRACT INFECTION [None]
  - YELLOW SKIN [None]
